FAERS Safety Report 4320820-1 (Version None)
Quarter: 2004Q1

REPORT INFORMATION
  Report Type: 
  Country: None (occurrence: None)
  Receive Date: 20040318
  Receipt Date: 20040317
  Transmission Date: 20041129
  Serious: Yes (Hospitalization, Other)
  Sender: FDA-Public Use
  Company Number: FRWYE593019FEB04

PATIENT
  Age: 72 Year
  Sex: Female

DRUGS (11)
  1. EFFEXOR XR [Suspect]
     Indication: DEPRESSION
     Dosage: 37.5 MG 2X PER 1 DAY; ORAL
     Route: 048
     Dates: end: 20031201
  2. APROVEL (IRBESARTAN, , 0) [Suspect]
     Indication: HYPERTENSION
     Dosage: 300 MG 1X PER 1 DAY; ORAL
     Route: 048
     Dates: end: 20031201
  3. TRAMADOL HCL [Suspect]
     Dosage: 2 TABLET 1X PER 1 DAY; ORAL
     Route: 048
     Dates: end: 20031201
  4. LASILIX (FUROSEMIDE, , 0) [Suspect]
     Indication: HYPERTENSION
     Dosage: 1 DOSE 1X PER 1 DAY; ORAL
     Route: 048
     Dates: end: 20031203
  5. NEURONTIN [Suspect]
     Dosage: 2 DOSE 1X PER 1 DAY; ORAL
     Route: 048
     Dates: end: 20031205
  6. AMLODIPINE BESYLATE [Concomitant]
  7. GLUCOR (ACARBOSE) [Concomitant]
  8. OGAST (LANSOPRAZOLE) [Concomitant]
  9. DIFRAREL (BETACAROTENE/MYRTILLUS) [Concomitant]
  10. ACETAMINOPHEN [Concomitant]
  11. VASTAREL (TRIMETAZIDINE HYDROCHLORIDE) [Concomitant]

REACTIONS (7)
  - BRADYARRHYTHMIA [None]
  - ELECTROENCEPHALOGRAM ABNORMAL [None]
  - FALL [None]
  - HEADACHE [None]
  - METABOLIC DISORDER [None]
  - NERVOUS SYSTEM DISORDER [None]
  - VERTIGO [None]
